FAERS Safety Report 12731143 (Version 1)
Quarter: 2016Q3

REPORT INFORMATION
  Report Type: Spontaneous
  Country: US (occurrence: US)
  Receive Date: 20160909
  Receipt Date: 20160909
  Transmission Date: 20161109
  Serious: Yes (Disabling)
  Sender: FDA-Public Use
  Company Number: None

PATIENT
  Age: 50 Year
  Sex: Female
  Weight: 72 kg

DRUGS (10)
  1. BIO-IDENTICAL PROGESTERONE [Concomitant]
  2. IBUPROFEN. [Concomitant]
     Active Substance: IBUPROFEN
  3. CHLORTABS [Concomitant]
     Active Substance: CHLORPHENIRAMINE MALEATE
  4. RESCUE SLEEP [Concomitant]
     Active Substance: HOMEOPATHICS
  5. ESTRIOL/ESTRADIOL [Concomitant]
  6. TURMERIC [Concomitant]
     Active Substance: TURMERIC
  7. PROBIOTICS [Concomitant]
     Active Substance: PROBIOTICS NOS
  8. CIPROFLOXACIN. [Suspect]
     Active Substance: CIPROFLOXACIN
     Indication: URINARY TRACT INFECTION
     Route: 048
     Dates: start: 20151116, end: 20151124
  9. MULTIVITAMINS [Concomitant]
     Active Substance: VITAMINS
  10. POWER TO SLEEP PM [Concomitant]

REACTIONS (4)
  - Fatigue [None]
  - Pain [None]
  - Arthropathy [None]
  - Neuropathy peripheral [None]

NARRATIVE: CASE EVENT DATE: 20151117
